FAERS Safety Report 7893258 (Version 2)
Quarter: 2012Q4

REPORT INFORMATION
  Report Type: 
  Country: US (occurrence: US)
  Receive Date: 20110411
  Receipt Date: 20121116
  Transmission Date: 20130627
  Serious: Yes (Other)
  Sender: FDA-Public Use
  Company Number: US-ROCHE-769513

PATIENT
  Age: 27 Year
  Sex: Female
  Weight: 74.91 kg

DRUGS (2)
  1. ACCUTANE [Suspect]
     Indication: ACNE
     Route: 065
  2. ACCUTANE [Suspect]
     Route: 065
     Dates: start: 20011217, end: 200205

REACTIONS (5)
  - Colitis ulcerative [Unknown]
  - Depression [Unknown]
  - Injury [Unknown]
  - Xerosis [Unknown]
  - Blood cholesterol increased [Recovered/Resolved]
